FAERS Safety Report 25481880 (Version 1)
Quarter: 2025Q2

REPORT INFORMATION
  Report Type: Spontaneous
  Country: CN (occurrence: CN)
  Receive Date: 20250626
  Receipt Date: 20250626
  Transmission Date: 20250716
  Serious: Yes (Hospitalization, Other)
  Sender: CATALYST PHARMA
  Company Number: CN-CATALYSTPHARMACEUTICALPARTNERS-CN-CATA-25-00895

PATIENT
  Age: 20 Year
  Sex: Female

DRUGS (3)
  1. PERAMPANEL [Suspect]
     Active Substance: PERAMPANEL
     Indication: Encephalitis autoimmune
     Dosage: 4.0 MILLIGRAM(S) (4 MILLIGRAM(S), 1 IN 1 DAY)
     Route: 048
     Dates: end: 20241017
  2. PERAMPANEL [Suspect]
     Active Substance: PERAMPANEL
     Dosage: 8.0 MILLIGRAM(S) (8 MILLIGRAM(S), 1 IN 1 DAY)
     Route: 048
     Dates: start: 20241018, end: 20241028
  3. PERAMPANEL [Suspect]
     Active Substance: PERAMPANEL
     Route: 048
     Dates: start: 20241029, end: 20241107

REACTIONS (5)
  - Mental impairment [Unknown]
  - Somnolence [Recovering/Resolving]
  - Suicidal ideation [Recovering/Resolving]
  - Affect lability [Recovering/Resolving]
  - Off label use [Unknown]

NARRATIVE: CASE EVENT DATE: 20241018
